FAERS Safety Report 9030830 (Version 1)
Quarter: 2013Q1

REPORT INFORMATION
  Report Type: Report from Study
  Country: US (occurrence: US)
  Receive Date: 20130123
  Receipt Date: 20130123
  Transmission Date: 20140127
  Serious: Yes (Other)
  Sender: FDA-Public Use
  Company Number: US-ROCHE-1179938

PATIENT
  Sex: 0

DRUGS (3)
  1. BEVACIZUMAB [Suspect]
     Indication: METASTATIC SQUAMOUS CELL CARCINOMA
     Route: 042
  2. CETUXIMAB [Suspect]
     Indication: METASTATIC SQUAMOUS CELL CARCINOMA
     Dosage: OVER 60 MIN, ON DAYS 1, 8, AND 15
     Route: 042
  3. CETUXIMAB [Suspect]
     Route: 042

REACTIONS (10)
  - Proteinuria [Unknown]
  - Myocardial ischaemia [Unknown]
  - Hyponatraemia [Unknown]
  - Hypertension [Unknown]
  - Dysphagia [Unknown]
  - Rash [Unknown]
  - Fatigue [Unknown]
  - Pain [Unknown]
  - Infection [Unknown]
  - Haemorrhage [Unknown]
